FAERS Safety Report 5386007-9 (Version None)
Quarter: 2007Q3

REPORT INFORMATION
  Report Type: 
  Country: None (occurrence: None)
  Receive Date: 20070710
  Receipt Date: 20070626
  Transmission Date: 20080115
  Serious: Yes (Other)
  Sender: FDA-Public Use
  Company Number: FABR-11993

PATIENT
  Age: 64 Year
  Weight: 72 kg

DRUGS (6)
  1. FABRAZYME [Suspect]
     Indication: FABRY'S DISEASE
     Dosage: 70 MG Q2WKS IV
     Route: 042
     Dates: start: 20010711
  2. XATRAL. MFR: SYNTHELABO FRANCE (LAB) [Concomitant]
  3. BURINEX. MFR: LEO AB [Concomitant]
  4. INSPRA [Concomitant]
  5. TRIATEC. MFR: HOECHST PHARMACEUTICALS, INCORPORATED [Concomitant]
  6. VASTAREL [Concomitant]

REACTIONS (3)
  - EPILEPSY [None]
  - HEADACHE [None]
  - VASCULAR ENCEPHALOPATHY [None]
